FAERS Safety Report 10221416 (Version 1)
Quarter: 2014Q2

REPORT INFORMATION
  Report Type: Spontaneous
  Country: ES (occurrence: ES)
  Receive Date: 20140606
  Receipt Date: 20140606
  Transmission Date: 20141212
  Serious: Yes (Other)
  Sender: FDA-Public Use
  Company Number: ES-TEVA-485350ISR

PATIENT
  Age: 65 Year
  Sex: Male

DRUGS (1)
  1. OXALIPLATINO TEVA 5MG/ML CONCENTRADO PARA SOLUCION PARA PERFUSION EFG [Suspect]
     Indication: COLON CANCER
     Route: 065
     Dates: start: 20140512

REACTIONS (1)
  - Apnoeic attack [Recovered/Resolved]
